FAERS Safety Report 7202599-9 (Version None)
Quarter: 2010Q4

REPORT INFORMATION
  Report Type: 
  Country: None (occurrence: None)
  Receive Date: 20101126
  Receipt Date: 20100929
  Transmission Date: 20110411
  Serious: Yes (Hospitalization)
  Sender: FDA-Public Use
  Company Number: 315726

PATIENT
  Age: 43 Year
  Sex: Male

DRUGS (4)
  1. VICTOZA [Suspect]
     Indication: TYPE 2 DIABETES MELLITUS
     Dosage: SUBCUTANEOUS
     Route: 058
     Dates: start: 20100919, end: 20100919
  2. JANUVIA [Concomitant]
  3. CLARITIN /00413701/ (GLICLAZIDE) [Concomitant]
  4. FLONASE [Concomitant]

REACTIONS (1)
  - PANCREATITIS ACUTE [None]
